FAERS Safety Report 16599081 (Version 2)
Quarter: 2019Q4

REPORT INFORMATION
  Report Type: Report from Study
  Country: US (occurrence: US)
  Receive Date: 20190719
  Receipt Date: 20191002
  Transmission Date: 20200122
  Serious: Yes (Hospitalization)
  Sender: FDA-Public Use
  Company Number: PHEH2019US030040

PATIENT
  Sex: Female

DRUGS (2)
  1. ENTRESTO [Suspect]
     Active Substance: SACUBITRIL\VALSARTAN
     Indication: PRODUCT USED FOR UNKNOWN INDICATION
     Dosage: UNK
     Route: 048
  2. ENTRESTO [Suspect]
     Active Substance: SACUBITRIL\VALSARTAN
     Dosage: 1 DF (49 MG SACUBITRIL AND 51 MG VALSARTAN), BID
     Route: 048

REACTIONS (6)
  - Diarrhoea [Unknown]
  - Weight decreased [Unknown]
  - Stress [Unknown]
  - Decreased appetite [Unknown]
  - Asthenia [Unknown]
  - Negative thoughts [Unknown]
